FAERS Safety Report 11294585 (Version 1)
Quarter: 2015Q3

REPORT INFORMATION
  Report Type: Spontaneous
  Country: FR (occurrence: None)
  Receive Date: 20150721
  Receipt Date: 20150721
  Transmission Date: 20151125
  Serious: Yes (Hospitalization)
  Sender: FDA-Public Use
  Company Number: 2015-001483

PATIENT
  Age: 89 Year
  Sex: Female

DRUGS (3)
  1. ACTONEL [Suspect]
     Active Substance: RISEDRONATE SODIUM
     Indication: HYPERTENSION
     Route: 048
     Dates: end: 20150618
  2. KARDEGIC [Suspect]
     Active Substance: ASPIRIN LYSINE
     Dosage: 160 MG SACHET
     Dates: end: 20150618
  3. MODUCREN [Suspect]
     Active Substance: AMILORIDE HYDROCHLORIDE\HYDROCHLOROTHIAZIDE\TIMOLOL MALEATE
     Indication: HYPERTENSION
     Route: 048
     Dates: end: 20150618

REACTIONS (5)
  - Hepatocellular injury [None]
  - Diet refusal [None]
  - Dehydration [None]
  - Cholestasis [None]
  - Cholelithiasis [None]

NARRATIVE: CASE EVENT DATE: 20150616
